FAERS Safety Report 5573956-1 (Version None)
Quarter: 2007Q4

REPORT INFORMATION
  Report Type: 
  Country: None (occurrence: None)
  Receive Date: 20071220
  Receipt Date: 20071207
  Transmission Date: 20080405
  Serious: Yes (Other)
  Sender: FDA-Public Use
  Company Number: 2007S1013294

PATIENT
  Age: 13 Year
  Sex: Female
  Weight: 37.195 kg

DRUGS (6)
  1. SALBUTAMOL SULFATE [Suspect]
     Indication: HYPERSENSITIVITY
     Dosage: 2.5 ML; AS NEEDED; INHALATION
     Route: 055
     Dates: start: 19980101
  2. PROGRAF [Concomitant]
  3. SODIUM BICARBONATE [Concomitant]
  4. PREDNISONE [Concomitant]
  5. PEPCID /00706001/ [Concomitant]
  6. EPIPEN /00003901/ [Concomitant]

REACTIONS (3)
  - BRONCHOSPASM [None]
  - DRUG INEFFECTIVE [None]
  - DYSPNOEA [None]
